FAERS Safety Report 10659982 (Version 1)
Quarter: 2014Q4

REPORT INFORMATION
  Report Type: Spontaneous
  Country: US (occurrence: None)
  Receive Date: 20141216
  Receipt Date: 20141216
  Transmission Date: 20150529
  Serious: Yes (Life-Threatening)
  Sender: FDA-Public Use
  Company Number: None

PATIENT
  Age: 4 Year
  Sex: Female
  Weight: 22.68 kg

DRUGS (2)
  1. MIRALAX [Suspect]
     Active Substance: POLYETHYLENE GLYCOL 3350
     Indication: CONSTIPATION
     Dosage: APPROX HALF A CAPFUL, ONCE DAILY
     Route: 048
     Dates: start: 20121101, end: 20130501
  2. MIRALAX [Suspect]
     Active Substance: POLYETHYLENE GLYCOL 3350
     Indication: ENCOPRESIS
     Dosage: APPROX HALF A CAPFUL, ONCE DAILY
     Route: 048
     Dates: start: 20121101, end: 20130501

REACTIONS (10)
  - Balance disorder [None]
  - Chills [None]
  - Respiratory rate increased [None]
  - Oxygen saturation decreased [None]
  - Tic [None]
  - Loss of consciousness [None]
  - Dehydration [None]
  - Pyrexia [None]
  - Diarrhoea [None]
  - Incoherent [None]

NARRATIVE: CASE EVENT DATE: 20121101
